FAERS Safety Report 21169491 (Version 2)
Quarter: 2022Q3

REPORT INFORMATION
  Report Type: Spontaneous
  Country: CO (occurrence: CO)
  Receive Date: 20220804
  Receipt Date: 20220914
  Transmission Date: 20221026
  Serious: Yes (Hospitalization)
  Sender: FDA-Public Use
  Company Number: CO-009507513-2208COL001665

PATIENT
  Age: 23 Year
  Sex: Female

DRUGS (1)
  1. KEYTRUDA [Suspect]
     Active Substance: PEMBROLIZUMAB
     Indication: Hodgkin^s disease
     Dosage: UNK

REACTIONS (4)
  - Hypotension [Recovered/Resolved]
  - Hypertension [Recovered/Resolved]
  - Pyrexia [Unknown]
  - General physical health deterioration [Unknown]
